FAERS Safety Report 16667127 (Version 1)
Quarter: 2019Q3

REPORT INFORMATION
  Report Type: Spontaneous
  Country: US (occurrence: US)
  Receive Date: 20190805
  Receipt Date: 20190805
  Transmission Date: 20191004
  Serious: Yes (Hospitalization, Other)
  Sender: FDA-Public Use
  Company Number: US-ACCORD-150258

PATIENT
  Age: 22 Year

DRUGS (2)
  1. BUPROPION/BUPROPION HYDROCHLORIDE [Suspect]
     Active Substance: BUPROPION HYDROCHLORIDE
     Indication: DEPRESSION
  2. FLUOXETINE [Interacting]
     Active Substance: FLUOXETINE HYDROCHLORIDE
     Indication: DEPRESSION

REACTIONS (4)
  - Drug interaction [Unknown]
  - Status epilepticus [Recovered/Resolved]
  - Overdose [Unknown]
  - Serotonin syndrome [Recovered/Resolved]
